FAERS Safety Report 20985951 (Version 1)
Quarter: 2022Q2

REPORT INFORMATION
  Report Type: Spontaneous
  Country: US (occurrence: US)
  Receive Date: 20220621
  Receipt Date: 20220621
  Transmission Date: 20220721
  Serious: No
  Sender: FDA-Public Use
  Company Number: US-drreddys-SPO/USA/22/0151193

PATIENT
  Age: 19 Year
  Sex: Female

DRUGS (2)
  1. ZENATANE [Suspect]
     Active Substance: ISOTRETINOIN
     Indication: Acne cystic
     Dosage: RMA ISSUE DATE: 21 OCTOBER 2021 12:00:00 AM; 08 APRIL 2022 05:58:59 PM; 15 MAY 2022 11:18:35 AM
  2. ZENATANE [Suspect]
     Active Substance: ISOTRETINOIN
     Dosage: RMA ISSUE DATE: 22 NOVEMBER 2021 12:00:00 AM

REACTIONS (2)
  - Conjunctivitis [Unknown]
  - Product use in unapproved indication [Unknown]
